FAERS Safety Report 8150640 (Version 2)
Quarter: 2013Q2

REPORT INFORMATION
  Report Type: Spontaneous
  Country: US (occurrence: US)
  Receive Date: 20110922
  Receipt Date: 20130517
  Transmission Date: 20140414
  Serious: Yes (Other)
  Sender: FDA-Public Use
  Company Number: US-ASTRAZENECA-2011SE12523

PATIENT
  Age: 28 Year
  Sex: Male
  Weight: 141.1 kg

DRUGS (5)
  1. SEROQUEL [Suspect]
     Route: 048
  2. TOPROL XL [Concomitant]
     Route: 048
     Dates: start: 200709
  3. PRAVACHOL [Concomitant]
     Route: 048
     Dates: start: 200709
  4. RISPERDAL [Concomitant]
     Route: 048
     Dates: start: 200709
  5. CELEXA [Concomitant]
     Route: 048
     Dates: start: 200709

REACTIONS (3)
  - Pancreatitis [Unknown]
  - Diabetic coma [Unknown]
  - Type 2 diabetes mellitus [Unknown]
